FAERS Safety Report 19031724 (Version 1)
Quarter: 2021Q1

REPORT INFORMATION
  Report Type: Spontaneous
  Country: BR (occurrence: BR)
  Receive Date: 20210319
  Receipt Date: 20210319
  Transmission Date: 20210420
  Serious: Yes (Hospitalization)
  Sender: FDA-Public Use
  Company Number: BR-PFIZER INC-2021256876

PATIENT
  Sex: Female

DRUGS (2)
  1. LORBRENA [Suspect]
     Active Substance: LORLATINIB
     Dosage: 100 MG
  2. LORBRENA [Suspect]
     Active Substance: LORLATINIB
     Dosage: 50 MG, SPLITTING THE TABLET IN HALF

REACTIONS (6)
  - Blood glucose increased [Unknown]
  - COVID-19 [Recovering/Resolving]
  - Hypercholesterolaemia [Unknown]
  - Food intolerance [Unknown]
  - Somnolence [Unknown]
  - Wrong technique in product usage process [Unknown]
